FAERS Safety Report 6701485-8 (Version None)
Quarter: 2010Q2

REPORT INFORMATION
  Report Type: 
  Country: None (occurrence: None)
  Receive Date: 20100429
  Receipt Date: 20100427
  Transmission Date: 20101027
  Serious: Yes (Death, Hospitalization)
  Sender: FDA-Public Use
  Company Number: GB-WYE-G05992310

PATIENT
  Sex: Male
  Weight: 85.5 kg

DRUGS (7)
  1. GEMTUZUMAB OZOGAMICIN [Suspect]
     Indication: ACUTE MYELOID LEUKAEMIA
     Dosage: 5.8 MG EVERY 1 TOT
     Route: 042
     Dates: start: 20100108, end: 20100108
  2. DAUNORUBICIN HCL [Concomitant]
     Indication: ACUTE MYELOID LEUKAEMIA
     Route: 040
     Dates: start: 20100108, end: 20100112
  3. ANTIEMETICS AND ANTINAUSEANTS [Concomitant]
     Dosage: UNKNOWN
     Dates: start: 20100101
  4. CHLORPHENIRAMINE MALEATE [Concomitant]
     Dosage: 10 MG EVERY 1 TOT
     Route: 042
     Dates: start: 20100108, end: 20100108
  5. ALLOPURINOL [Concomitant]
     Dosage: UNKNOWN
     Route: 048
     Dates: start: 20100101
  6. ARA-C [Concomitant]
     Indication: ACUTE MYELOID LEUKAEMIA
     Route: 040
     Dates: start: 20100108, end: 20100117
  7. METHYLPREDNISOLONE [Concomitant]
     Dosage: 50 MG EVERY 1 TOT
     Route: 042
     Dates: start: 20100108, end: 20100108

REACTIONS (3)
  - BACTERIAL INFECTION [None]
  - NEUTROPENIC SEPSIS [None]
  - PNEUMONIA [None]
